FAERS Safety Report 13842540 (Version 11)
Quarter: 2018Q1

REPORT INFORMATION
  Report Type: Spontaneous
  Country: JP (occurrence: JP)
  Receive Date: 20170808
  Receipt Date: 20180308
  Transmission Date: 20180508
  Serious: Yes (Life-Threatening, Hospitalization, Other)
  Sender: FDA-Public Use
  Company Number: JP-009507513-1707JPN002462J

PATIENT
  Age: 62 Year
  Sex: Female
  Weight: 43 kg

DRUGS (2)
  1. KEYTRUDA [Suspect]
     Active Substance: PEMBROLIZUMAB
     Indication: LUNG ADENOCARCINOMA
     Dosage: 200 MG, Q3W
     Route: 041
     Dates: start: 20170531, end: 20170531
  2. ZOSYN [Suspect]
     Active Substance: PIPERACILLIN SODIUM\TAZOBACTAM SODIUM
     Indication: ENTERITIS
     Dosage: UNK
     Route: 065
     Dates: start: 201708

REACTIONS (6)
  - Hepatic function abnormal [Recovered/Resolved]
  - Interstitial lung disease [Recovered/Resolved]
  - Enteritis [Recovering/Resolving]
  - Hypothyroidism [Recovered/Resolved]
  - Pneumatosis intestinalis [Recovering/Resolving]
  - Enterocolitis [Recovering/Resolving]

NARRATIVE: CASE EVENT DATE: 20170608
